FAERS Safety Report 9425136 (Version 5)
Quarter: 2014Q2

REPORT INFORMATION
  Report Type: Spontaneous
  Country: GB (occurrence: GB)
  Receive Date: 20130729
  Receipt Date: 20140403
  Transmission Date: 20141212
  Serious: Yes (Other)
  Sender: FDA-Public Use
  Company Number: GB-PFIZER INC-2013217203

PATIENT
  Age: 32 Year
  Sex: Female
  Weight: 50 kg

DRUGS (3)
  1. SERTRALINE HCL [Suspect]
     Indication: ANXIETY
     Dosage: 50 MG, ONCE DAILY
     Route: 048
     Dates: start: 20120407, end: 20120416
  2. SERTRALINE HCL [Suspect]
     Indication: FLUSHING
  3. DIANETTE [Concomitant]
     Dosage: UNK LONG TERM USE

REACTIONS (7)
  - Paranoia [Recovered/Resolved with Sequelae]
  - Psychotic disorder [Recovered/Resolved with Sequelae]
  - Hallucination, visual [Recovered/Resolved with Sequelae]
  - Fear [Recovered/Resolved with Sequelae]
  - Phobia [Recovered/Resolved with Sequelae]
  - Insomnia [Recovered/Resolved with Sequelae]
  - Feeling abnormal [Recovered/Resolved]
